FAERS Safety Report 20062037 (Version 2)
Quarter: 2021Q4

REPORT INFORMATION
  Report Type: Spontaneous
  Country: JP (occurrence: JP)
  Receive Date: 20211112
  Receipt Date: 20211229
  Transmission Date: 20220303
  Serious: Yes (Other)
  Sender: FDA-Public Use
  Company Number: JP-TAKEDA-2021TJP115318

PATIENT
  Age: 3 Decade
  Sex: Female

DRUGS (1)
  1. ZEJULA [Suspect]
     Active Substance: NIRAPARIB
     Indication: Ovarian cancer
     Dosage: 100 MILLIGRAM, QD
     Route: 048
     Dates: start: 20210129

REACTIONS (1)
  - Pulmonary haematoma [Unknown]

NARRATIVE: CASE EVENT DATE: 20211001
